FAERS Safety Report 9913963 (Version 1)
Quarter: 2014Q1

REPORT INFORMATION
  Report Type: Spontaneous
  Country: US (occurrence: None)
  Receive Date: 20140219
  Receipt Date: 20140219
  Transmission Date: 20141002
  Serious: Yes (Life-Threatening, Hospitalization, Disabling)
  Sender: FDA-Public Use
  Company Number: None

PATIENT
  Age: 40 Year
  Sex: Female
  Weight: 99.79 kg

DRUGS (1)
  1. NORPLANT [Suspect]
     Indication: CONTRACEPTION

REACTIONS (2)
  - Deep vein thrombosis [None]
  - Pulmonary thrombosis [None]
